FAERS Safety Report 4754970-2 (Version None)
Quarter: 2005Q3

REPORT INFORMATION
  Report Type: 
  Country: None (occurrence: None)
  Receive Date: 20050829
  Receipt Date: 20050819
  Transmission Date: 20060218
  Serious: Yes (Other)
  Sender: FDA-Public Use
  Company Number: 200516308US

PATIENT
  Sex: 0

DRUGS (1)
  1. AMARYL [Suspect]
     Dosage: DOSE: UNK

REACTIONS (6)
  - BLOOD GLUCOSE INCREASED [None]
  - CHEST DISCOMFORT [None]
  - MUSCLE TIGHTNESS [None]
  - OEDEMA PERIPHERAL [None]
  - PARAESTHESIA [None]
  - PRURITUS [None]
